FAERS Safety Report 12985478 (Version 1)
Quarter: 2016Q4

REPORT INFORMATION
  Report Type: Spontaneous
  Country: US (occurrence: US)
  Receive Date: 20161130
  Receipt Date: 20161130
  Transmission Date: 20170207
  Serious: No
  Sender: FDA-Public Use
  Company Number: US-TEVA-697316USA

PATIENT
  Sex: Male
  Weight: 95.34 kg

DRUGS (1)
  1. PROPAFENONE. [Suspect]
     Active Substance: PROPAFENONE
     Indication: CARDIAC DISORDER
     Dates: start: 20160804

REACTIONS (4)
  - Muscle spasms [Unknown]
  - Weight decreased [Unknown]
  - Abdominal pain upper [Unknown]
  - Overdose [Unknown]
